FAERS Safety Report 13884588 (Version 1)
Quarter: 2017Q3

REPORT INFORMATION
  Report Type: Spontaneous
  Country: US (occurrence: US)
  Receive Date: 20170821
  Receipt Date: 20170821
  Transmission Date: 20171127
  Serious: Yes (Other)
  Sender: FDA-Public Use
  Company Number: US-ELI_LILLY_AND_COMPANY-US201708004808

PATIENT
  Sex: Male

DRUGS (8)
  1. INVOKANA [Concomitant]
     Active Substance: CANAGLIFLOZIN
     Dosage: UNK, UNKNOWN
     Route: 065
  2. EFFIENT [Suspect]
     Active Substance: PRASUGREL HYDROCHLORIDE
     Indication: CORONARY ARTERIAL STENT INSERTION
     Dosage: 10 MG, DAILY
     Route: 048
     Dates: start: 2013
  3. LISINOPRIL. [Concomitant]
     Active Substance: LISINOPRIL
     Dosage: UNK, UNKNOWN
     Route: 065
  4. METFORMIN [Concomitant]
     Active Substance: METFORMIN HYDROCHLORIDE
     Dosage: UNK, UNKNOWN
     Route: 065
  5. PRAVASTATIN. [Concomitant]
     Active Substance: PRAVASTATIN
     Dosage: UNK, UNKNOWN
     Route: 065
  6. METOPROLOL. [Concomitant]
     Active Substance: METOPROLOL
     Dosage: UNK, UNKNOWN
     Route: 065
  7. AMBIEN [Concomitant]
     Active Substance: ZOLPIDEM TARTRATE
     Dosage: UNK, UNKNOWN
     Route: 065
  8. ASPIRIN                            /00002701/ [Concomitant]
     Active Substance: ASPIRIN
     Dosage: UNK, UNKNOWN
     Route: 065

REACTIONS (3)
  - Neck pain [Not Recovered/Not Resolved]
  - Musculoskeletal disorder [Unknown]
  - Spinal osteoarthritis [Not Recovered/Not Resolved]

NARRATIVE: CASE EVENT DATE: 2016
